FAERS Safety Report 25246849 (Version 1)
Quarter: 2025Q2

REPORT INFORMATION
  Report Type: Spontaneous
  Country: US (occurrence: US)
  Receive Date: 20250428
  Receipt Date: 20250428
  Transmission Date: 20250716
  Serious: Yes (Life-Threatening, Hospitalization, Other)
  Sender: JOHNSON AND JOHNSON
  Company Number: US-JNJFOC-20250428056

PATIENT
  Age: 63 Year
  Sex: Female
  Weight: 102.5 kg

DRUGS (4)
  1. CARVYKTI [Suspect]
     Active Substance: CILTACABTAGENE AUTOLEUCEL
     Indication: Plasma cell myeloma
     Route: 041
     Dates: start: 20250204
  2. SODIUM CHLORIDE [Concomitant]
     Active Substance: SODIUM CHLORIDE
     Route: 042
  3. MEROPENEM [Concomitant]
     Active Substance: MEROPENEM
  4. VANCOMYCIN [Concomitant]
     Active Substance: VANCOMYCIN
     Dates: start: 20250221

REACTIONS (14)
  - Pulseless electrical activity [Recovering/Resolving]
  - Cytokine release syndrome [Unknown]
  - Immune effector cell-associated neurotoxicity syndrome [Recovered/Resolved]
  - Haemophagocytic lymphohistiocytosis [Recovering/Resolving]
  - Tumour lysis syndrome [Recovering/Resolving]
  - Acute kidney injury [Recovering/Resolving]
  - Hyperkalaemia [Unknown]
  - Cerebral infarction [Recovering/Resolving]
  - Respiratory failure [Recovering/Resolving]
  - Pneumonia [Unknown]
  - Cerebral haemorrhage [Recovering/Resolving]
  - Chest pain [Unknown]
  - Infection [Unknown]
  - Back pain [Unknown]

NARRATIVE: CASE EVENT DATE: 20250210
